FAERS Safety Report 4956348-5 (Version None)
Quarter: 2006Q1

REPORT INFORMATION
  Report Type: 
  Country: None (occurrence: None)
  Receive Date: 20060323
  Receipt Date: 20060310
  Transmission Date: 20060701
  Serious: Yes (Hospitalization)
  Sender: FDA-Public Use
  Company Number: 2006017578

PATIENT
  Age: 8 Month
  Sex: Female

DRUGS (4)
  1. SILDENAFIL CITRATE [Suspect]
     Indication: PULMONARY ARTERIAL PRESSURE INCREASED
     Dosage: (2 IN 1 D), ORAL
     Route: 048
     Dates: start: 20060127, end: 20060131
  2. CAPTOPRIL [Concomitant]
  3. DIGOXIN [Concomitant]
  4. LASIX [Concomitant]

REACTIONS (3)
  - BLOOD PRESSURE INCREASED [None]
  - CIRCUMSTANCE OR INFORMATION CAPABLE OF LEADING TO MEDICATION ERROR [None]
  - HEART RATE INCREASED [None]
